FAERS Safety Report 7414046-2 (Version None)
Quarter: 2011Q2

REPORT INFORMATION
  Report Type: 
  Country: None (occurrence: None)
  Receive Date: 20110414
  Receipt Date: 20090716
  Transmission Date: 20111010
  Serious: No
  Sender: FDA-Public Use
  Company Number: 2009BI022207

PATIENT
  Age: 38 Year
  Sex: Female

DRUGS (2)
  1. TYSABRI [Suspect]
     Indication: MULTIPLE SCLEROSIS
     Route: 042
     Dates: start: 20090204, end: 20100126
  2. TYSABRI [Suspect]
     Route: 042
     Dates: start: 20110202

REACTIONS (7)
  - DISCOMFORT [None]
  - URINE ODOUR ABNORMAL [None]
  - MICTURITION URGENCY [None]
  - URINE ABNORMALITY [None]
  - INCONTINENCE [None]
  - CYSTITIS [None]
  - CHROMATURIA [None]
